FAERS Safety Report 9546554 (Version 38)
Quarter: 2015Q3

REPORT INFORMATION
  Report Type: Report from Study
  Country: CA (occurrence: CA)
  Receive Date: 20130923
  Receipt Date: 20150710
  Transmission Date: 20151125
  Serious: Yes (Hospitalization, Other)
  Sender: FDA-Public Use
  Company Number: CA-ROCHE-1269912

PATIENT
  Age: 69 Year
  Sex: Female
  Weight: 102 kg

DRUGS (16)
  1. TAMOXIFEN [Concomitant]
     Active Substance: TAMOXIFEN
     Route: 065
     Dates: start: 20140201
  2. KADCYLA [Suspect]
     Active Substance: ADO-TRASTUZUMAB EMTANSINE
     Indication: HER-2 POSITIVE BREAST CANCER
     Dosage: ON HOLD
     Route: 042
     Dates: start: 20141022
  3. PERJETA [Suspect]
     Active Substance: PERTUZUMAB
     Dosage: MAINTENANCE DOSE
     Route: 042
     Dates: end: 20140925
  4. PAXIL (CANADA) [Concomitant]
     Route: 048
     Dates: start: 2009
  5. ZESTORETIC [Concomitant]
     Active Substance: HYDROCHLOROTHIAZIDE\LISINOPRIL
     Dosage: 20 YEARS AGO NOS
     Route: 048
  6. TAXOL [Concomitant]
     Active Substance: PACLITAXEL
     Route: 065
     Dates: end: 201006
  7. CLONAZEPAM. [Concomitant]
     Active Substance: CLONAZEPAM
     Dosage: AS REQUIRED
     Route: 048
     Dates: start: 2009
  8. XGEVA [Concomitant]
     Active Substance: DENOSUMAB
  9. HERCEPTIN [Suspect]
     Active Substance: TRASTUZUMAB
     Route: 042
     Dates: start: 20130823, end: 20130912
  10. PERJETA [Suspect]
     Active Substance: PERTUZUMAB
     Indication: HER-2 POSITIVE BREAST CANCER
     Dosage: FREQUENCY: INTIAL DOSE
     Route: 042
     Dates: start: 20130821, end: 20130821
  11. DECADRON [Concomitant]
     Active Substance: DEXAMETHASONE
     Route: 048
     Dates: start: 201309
  12. CRESTOR [Concomitant]
     Active Substance: ROSUVASTATIN CALCIUM
     Dosage: STARTED 10 YEARS AGO NOS
     Route: 065
  13. HERCEPTIN [Suspect]
     Active Substance: TRASTUZUMAB
     Indication: BREAST CANCER METASTATIC
     Route: 042
     Dates: start: 20091201
  14. TAXOTERE [Suspect]
     Active Substance: DOCETAXEL
     Indication: BREAST CANCER
     Route: 042
     Dates: start: 20130823, end: 20130912
  15. TAXOTERE [Suspect]
     Active Substance: DOCETAXEL
     Route: 042
     Dates: start: 20130913
  16. PANTOLOC [Concomitant]
     Active Substance: PANTOPRAZOLE SODIUM
     Indication: GASTROOESOPHAGEAL REFLUX DISEASE
     Route: 048
     Dates: start: 2013

REACTIONS (70)
  - Fracture [Unknown]
  - Kidney infection [Recovered/Resolved]
  - Paraesthesia [Not Recovered/Not Resolved]
  - Dry skin [Not Recovered/Not Resolved]
  - Infusion site extravasation [Unknown]
  - Muscle spasms [Recovered/Resolved]
  - Nausea [Recovered/Resolved]
  - Vomiting [Recovered/Resolved]
  - Pyrexia [Unknown]
  - Nasopharyngitis [Recovered/Resolved]
  - Headache [Unknown]
  - Pyrexia [Recovered/Resolved]
  - Diverticulitis [Unknown]
  - Headache [Unknown]
  - Hyperhidrosis [Unknown]
  - Bone pain [Recovered/Resolved]
  - Dyspepsia [Recovering/Resolving]
  - Malignant neoplasm progression [Not Recovered/Not Resolved]
  - Blood pressure increased [Unknown]
  - Dysgeusia [Unknown]
  - Chest pain [Recovered/Resolved]
  - Bone pain [Recovered/Resolved]
  - Weight decreased [Not Recovered/Not Resolved]
  - Bone cancer [Unknown]
  - Osteonecrosis [Unknown]
  - Abdominal pain upper [Unknown]
  - Dysphagia [Unknown]
  - Myalgia [Unknown]
  - Pyrexia [Recovered/Resolved]
  - Neoplasm [Recovered/Resolved]
  - Urinary tract infection [Unknown]
  - Epistaxis [Unknown]
  - Diarrhoea [Recovered/Resolved]
  - Haemorrhoidal haemorrhage [Recovering/Resolving]
  - Cough [Unknown]
  - Fungal infection [Unknown]
  - Gingival swelling [Unknown]
  - Tooth disorder [Recovered/Resolved]
  - Fatigue [Unknown]
  - Neuralgia [Unknown]
  - Flushing [Unknown]
  - Constipation [Not Recovered/Not Resolved]
  - Hypoaesthesia [Not Recovered/Not Resolved]
  - Loose tooth [Not Recovered/Not Resolved]
  - Peripheral swelling [Not Recovered/Not Resolved]
  - Malaise [Not Recovered/Not Resolved]
  - Myalgia [Recovered/Resolved]
  - Pain in extremity [Not Recovered/Not Resolved]
  - Pain of skin [Unknown]
  - Face oedema [Not Recovered/Not Resolved]
  - Dry mouth [Unknown]
  - Stomatitis [Unknown]
  - Myalgia [Recovered/Resolved]
  - Anxiety [Unknown]
  - Pain in extremity [Unknown]
  - Poor venous access [Recovered/Resolved]
  - Pruritus [Not Recovered/Not Resolved]
  - Gingivitis [Unknown]
  - Arthralgia [Recovered/Resolved]
  - Device breakage [Not Recovered/Not Resolved]
  - Gingival disorder [Unknown]
  - Tumour marker increased [Not Recovered/Not Resolved]
  - Muscle spasms [Not Recovered/Not Resolved]
  - Rectal haemorrhage [Unknown]
  - Eye pruritus [Recovered/Resolved]
  - Pyrexia [Unknown]
  - Red blood cell count decreased [Unknown]
  - Fatigue [Not Recovered/Not Resolved]
  - Dyspnoea [Not Recovered/Not Resolved]
  - Dry mouth [Recovered/Resolved]

NARRATIVE: CASE EVENT DATE: 2013
